FAERS Safety Report 15685811 (Version 2)
Quarter: 2019Q1

REPORT INFORMATION
  Report Type: Spontaneous
  Country: US (occurrence: US)
  Receive Date: 20181204
  Receipt Date: 20190222
  Transmission Date: 20190417
  Serious: Yes (Other)
  Sender: FDA-Public Use
  Company Number: US-SA-2018SA325042

PATIENT
  Age: 47 Year
  Sex: Female
  Weight: 89.8 kg

DRUGS (5)
  1. PERJETA [Concomitant]
     Active Substance: PERTUZUMAB
  2. HERCEPTIN [Concomitant]
     Active Substance: TRASTUZUMAB
  3. PARAPLATIN [Concomitant]
     Active Substance: CARBOPLATIN
  4. TAXOTERE [Suspect]
     Active Substance: DOCETAXEL
     Indication: BREAST CANCER
     Dosage: UNK UNK, Q3W
     Route: 042
     Dates: start: 20140729, end: 20140729
  5. TAXOTERE [Suspect]
     Active Substance: DOCETAXEL
     Dosage: UNK UNK, Q3W
     Route: 042
     Dates: start: 20141113, end: 20141113

REACTIONS (1)
  - Alopecia [Recovering/Resolving]
